FAERS Safety Report 25747610 (Version 1)
Quarter: 2025Q3

REPORT INFORMATION
  Report Type: Spontaneous
  Country: US (occurrence: US)
  Receive Date: 20250901
  Receipt Date: 20250901
  Transmission Date: 20251020
  Serious: Yes (Other)
  Sender: AMGEN
  Company Number: US-AMGEN-USASP2025170455

PATIENT

DRUGS (1)
  1. BEVACIZUMAB [Suspect]
     Active Substance: BEVACIZUMAB
     Indication: Vitreous haemorrhage

REACTIONS (4)
  - Vitreous haemorrhage [Unknown]
  - Product dose omission issue [Unknown]
  - Drug effective for unapproved indication [Unknown]
  - Off label use [Unknown]
